FAERS Safety Report 19469196 (Version 4)
Quarter: 2021Q4

REPORT INFORMATION
  Report Type: Report from Study
  Country: IT (occurrence: IT)
  Receive Date: 20210629
  Receipt Date: 20211108
  Transmission Date: 20220303
  Serious: Yes (Hospitalization, Other)
  Sender: FDA-Public Use
  Company Number: IT-BRISTOL-MYERS SQUIBB COMPANY-BMS-2021-058438

PATIENT
  Age: 40 Year
  Sex: Male
  Weight: 98 kg

DRUGS (4)
  1. NIVOLUMAB [Suspect]
     Active Substance: NIVOLUMAB
     Indication: Clear cell sarcoma of soft tissue
     Dosage: 240 MILLIGRAM, Q2WK
     Route: 050
     Dates: start: 20210324
  2. SUNITINIB MALATE [Suspect]
     Active Substance: SUNITINIB MALATE
     Indication: Clear cell sarcoma of soft tissue
     Dosage: 37.5 MILLIGRAM, QD
     Route: 065
     Dates: start: 20210309, end: 20210323
  3. SUNITINIB MALATE [Suspect]
     Active Substance: SUNITINIB MALATE
     Dosage: 25 MILLIGRAM, QD
     Route: 048
     Dates: start: 20210324
  4. HYDROCHLOROTHIAZIDE;ZOFENOPRIL [Concomitant]
     Indication: Hypertension
     Dosage: UNK
     Route: 065
     Dates: start: 20210610

REACTIONS (1)
  - Device related sepsis [Recovered/Resolved]

NARRATIVE: CASE EVENT DATE: 20210602
